FAERS Safety Report 6115873-4 (Version None)
Quarter: 2009Q1

REPORT INFORMATION
  Report Type: 
  Country: None (occurrence: None)
  Receive Date: 20090311
  Receipt Date: 20090305
  Transmission Date: 20090719
  Serious: Yes (Other)
  Sender: FDA-Public Use
  Company Number: SPV1-2009-00365

PATIENT
  Age: 49 Year
  Sex: Female
  Weight: 86.2 kg

DRUGS (4)
  1. CARBATROL [Suspect]
     Indication: CONVULSION
     Dosage: 200 MG 6 CAPSULES DAILY, ORAL
     Route: 048
     Dates: start: 20090101
  2. CELEXA [Concomitant]
  3. METFORMIN HCL [Concomitant]
  4. CHOLESTEROL MEDICINE [Concomitant]

REACTIONS (7)
  - CONFUSIONAL STATE [None]
  - CONVULSION [None]
  - DRUG INEFFECTIVE [None]
  - INSOMNIA [None]
  - MALAISE [None]
  - MEMORY IMPAIRMENT [None]
  - STARING [None]
